FAERS Safety Report 9089344 (Version 2)
Quarter: 2013Q2

REPORT INFORMATION
  Report Type: Spontaneous
  Country: ES (occurrence: ES)
  Receive Date: 20130131
  Receipt Date: 20130531
  Transmission Date: 20140414
  Serious: Yes (Other)
  Sender: FDA-Public Use
  Company Number: ES-PFIZER INC-2013032200

PATIENT
  Age: 47 Year
  Sex: Male

DRUGS (1)
  1. IBUPROFEN [Suspect]
     Indication: LIMB DISCOMFORT
     Dosage: 600 MG, DAILY
     Route: 048

REACTIONS (1)
  - Acute generalised exanthematous pustulosis [Unknown]
